FAERS Safety Report 19055381 (Version 2)
Quarter: 2021Q3

REPORT INFORMATION
  Report Type: Not Available
  Country: None (occurrence: None)
  Receive Date: 20210325
  Receipt Date: 20210706
  Transmission Date: 20211014
  Serious: Yes (Other)
  Sender: FDA-Public Use
  Company Number: US-AKORN-163598

PATIENT
  Age: 20 Year
  Sex: Female

DRUGS (1)
  1. MYORISAN [Suspect]
     Active Substance: ISOTRETINOIN

REACTIONS (3)
  - Abortion induced [Recovered/Resolved]
  - Paternal exposure during pregnancy [Recovered/Resolved]
  - Off label use [Recovered/Resolved]
